FAERS Safety Report 8468781 (Version 13)
Quarter: 2012Q4

REPORT INFORMATION
  Report Type: 
  Country: US (occurrence: US)
  Receive Date: 20120321
  Receipt Date: 20121212
  Transmission Date: 20130627
  Serious: Yes (Other)
  Sender: FDA-Public Use
  Company Number: US-ASTRAZENECA-2011SE41564

PATIENT
  Age: 60 Year
  Sex: Male
  Weight: 112 kg

DRUGS (13)
  1. NEXIUM [Suspect]
     Indication: GASTROOESOPHAGEAL REFLUX DISEASE
     Route: 048
     Dates: start: 2001, end: 201010
  2. NEXIUM [Suspect]
     Indication: GASTROOESOPHAGEAL REFLUX DISEASE
     Route: 048
  3. NEXIUM [Suspect]
     Indication: GASTROOESOPHAGEAL REFLUX DISEASE
     Route: 048
     Dates: start: 20010801
  4. PRILOSEC [Concomitant]
  5. PRILOSEC [Concomitant]
     Dosage: ONCE A DAY
     Dates: start: 20040909
  6. PRILOSEC OTC [Concomitant]
  7. TUMS [Concomitant]
  8. TUMS [Concomitant]
  9. PEPTO-BISMOL [Concomitant]
  10. ZANTAC [Concomitant]
  11. CLONAZEPAM [Concomitant]
  12. AMBIEN [Concomitant]
     Indication: INSOMNIA
     Route: 048
     Dates: start: 20001005
  13. PREVACID [Concomitant]
     Route: 048
     Dates: start: 200702

REACTIONS (5)
  - Multiple fractures [Unknown]
  - Spinal fracture [Unknown]
  - Osteoporosis [Unknown]
  - Emotional distress [Unknown]
  - Depression [Unknown]
